FAERS Safety Report 6781033-7 (Version None)
Quarter: 2010Q2

REPORT INFORMATION
  Report Type: 
  Country: None (occurrence: None)
  Receive Date: 20100621
  Receipt Date: 20100610
  Transmission Date: 20101027
  Serious: No
  Sender: FDA-Public Use
  Company Number: US-JNJFOC-20100603980

PATIENT
  Sex: Male
  Weight: 111.13 kg

DRUGS (4)
  1. DURAGESIC-100 [Suspect]
     Indication: PANCREATITIS CHRONIC
     Route: 062
  2. VIOKASE [Concomitant]
     Indication: PANCREATIC ENZYMES
     Route: 048
  3. OPANA [Concomitant]
     Indication: PAIN
     Route: 048
  4. DILAUDID [Concomitant]
     Indication: PAIN
     Route: 048

REACTIONS (3)
  - DRUG ADMINISTERED AT INAPPROPRIATE SITE [None]
  - PRODUCT ADHESION ISSUE [None]
  - WRONG TECHNIQUE IN DRUG USAGE PROCESS [None]
